FAERS Safety Report 8542927-5 (Version None)
Quarter: 2012Q3

REPORT INFORMATION
  Report Type: 
  Country: None (occurrence: None)
  Receive Date: 20120716
  Receipt Date: 20120628
  Transmission Date: 20120928
  Serious: Yes (Hospitalization)
  Sender: FDA-Public Use
  Company Number: 2012070027

PATIENT
  Age: 85 Year
  Sex: Male

DRUGS (9)
  1. ATORVASTATIN CALCIUM [Suspect]
     Indication: HYPERLIPIDAEMIA
     Dosage: 0-0-1-0 (40 MG, 1 IN 1 D), ORAL
     Route: 048
  2. JANUMET [Suspect]
     Indication: TYPE 2 DIABETES MELLITUS
     Dosage: 50/500 MG (1 DOSAGE FORMS, 2 IN 1 D), ORAL
     Route: 048
  3. TORSEMIDE [Suspect]
     Indication: ESSENTIAL HYPERTENSION
     Dosage: 5 MG (5 MG, 1 IN 1 D) ORAL
     Route: 048
     Dates: start: 20120501, end: 20120511
  4. ASPIRIN [Concomitant]
  5. DIGOXIN [Suspect]
     Indication: MYOCARDIAL ISCHAEMIA
     Dosage: 0.125 MG (0.125 MG, 1 IN 1 D), ORAL
     Route: 048
     Dates: end: 20120511
  6. LOSARTAN POTASSIUM AND HYDROCHLOROTHIAZIDE [Suspect]
     Indication: ESSENTIAL HYPERTENSION
     Dosage: 25/12.5 MG (1 DOSAGE FORMS, 1 IN 1 D), ORAL
     Route: 048
     Dates: end: 20120511
  7. BISOPROLOL FUMARATE [Concomitant]
  8. MARCUMAR [Concomitant]
  9. INSPRA [Concomitant]

REACTIONS (15)
  - CHRONIC HEPATIC FAILURE [None]
  - CONDITION AGGRAVATED [None]
  - CARDIOACTIVE DRUG LEVEL INCREASED [None]
  - CONFUSIONAL STATE [None]
  - DEHYDRATION [None]
  - TOXICITY TO VARIOUS AGENTS [None]
  - PERSONALITY CHANGE [None]
  - HALLUCINATION [None]
  - GENERAL PHYSICAL HEALTH DETERIORATION [None]
  - DRUG INTERACTION [None]
  - DIARRHOEA [None]
  - NAUSEA [None]
  - BRADYCARDIA [None]
  - HYPOTENSION [None]
  - BLOOD LACTIC ACID INCREASED [None]
